FAERS Safety Report 19519656 (Version 1)
Quarter: 2021Q3

REPORT INFORMATION
  Report Type: Spontaneous
  Country: US (occurrence: US)
  Receive Date: 20210712
  Receipt Date: 20210712
  Transmission Date: 20211014
  Serious: Yes (Hospitalization, Other)
  Sender: FDA-Public Use
  Company Number: US-ABBVIE-21K-163-3983942-00

PATIENT
  Age: 56 Year
  Sex: Female

DRUGS (1)
  1. TESTOSTERONE. [Suspect]
     Active Substance: TESTOSTERONE
     Indication: SUPPLEMENTATION THERAPY
     Route: 061

REACTIONS (4)
  - Hypertensive emergency [Recovered/Resolved]
  - Carotid arteriosclerosis [Recovering/Resolving]
  - Left ventricular hypertrophy [Recovering/Resolving]
  - Renal artery fibromuscular dysplasia [Recovering/Resolving]
